FAERS Safety Report 6024135-5 (Version None)
Quarter: 2008Q4

REPORT INFORMATION
  Report Type: 
  Country: None (occurrence: None)
  Receive Date: 20081224
  Receipt Date: 20081210
  Transmission Date: 20090506
  Serious: Yes (Hospitalization)
  Sender: FDA-Public Use
  Company Number: KV200801076

PATIENT
  Age: 45 Year
  Sex: Male
  Weight: 84.4 kg

DRUGS (3)
  1. MORPHINE SULFATE [Suspect]
     Indication: POST-TRAUMATIC PAIN
     Dosage: 15 MG, TID, ORAL
     Route: 048
     Dates: start: 20080101, end: 20080101
  2. DEPAKOTE [Concomitant]
  3. LISINOPRIL [Concomitant]

REACTIONS (5)
  - HALLUCINATION [None]
  - HEART RATE INCREASED [None]
  - OVERDOSE [None]
  - PRODUCT QUALITY ISSUE [None]
  - WEIGHT INCREASED [None]
